FAERS Safety Report 9850244 (Version 1)
Quarter: 2013Q4

REPORT INFORMATION
  Report Type: Spontaneous
  Country: US (occurrence: None)
  Receive Date: 20131226
  Receipt Date: 20131226
  Transmission Date: 20140711
  Serious: Yes (Other)
  Sender: FDA-Public Use
  Company Number: PHEH2013US005910

PATIENT
  Age: 57 Year
  Sex: Female

DRUGS (1)
  1. SANDOSTATIN LAR [Suspect]
     Indication: ACROMEGALY
     Dosage: 20 MG , EVERY 4 WEEKS, INTRAMUSCULAR
     Route: 030

REACTIONS (4)
  - Diabetes mellitus [None]
  - Vertigo [None]
  - Incontinence [None]
  - Dizziness [None]
